FAERS Safety Report 4576381-5 (Version None)
Quarter: 2005Q1

REPORT INFORMATION
  Report Type: 
  Country: None (occurrence: None)
  Receive Date: 20050207
  Receipt Date: 20041207
  Transmission Date: 20050727
  Serious: Yes (Other)
  Sender: FDA-Public Use
  Company Number: 2005005571

PATIENT
  Age: 78 Year
  Sex: Female

DRUGS (4)
  1. CELEBREX [Suspect]
     Indication: BACK PAIN
     Dosage: 200 MG (200 MG 1 IN 1D) ORAL
     Route: 048
  2. ACETYLSALICYLIC ACID                (AETYLSALICYLIC ACID) [Concomitant]
  3. CANDESARTAN                (CANDESARTAN CILEXETIL) [Concomitant]
  4. SIMVASTATIN [Concomitant]

REACTIONS (1)
  - PHLEBOTHROMBOSIS [None]
